FAERS Safety Report 15910411 (Version 1)
Quarter: 2019Q1

REPORT INFORMATION
  Report Type: Spontaneous
  Country: US (occurrence: US)
  Receive Date: 20190204
  Receipt Date: 20190204
  Transmission Date: 20190417
  Serious: No
  Sender: FDA-Public Use
  Company Number: US-ABBVIE-18K-163-2309009-00

PATIENT
  Sex: Female

DRUGS (1)
  1. HUMIRA [Suspect]
     Active Substance: ADALIMUMAB
     Indication: HIDRADENITIS
     Dosage: LOADING DOSE
     Route: 058
     Dates: start: 20180329

REACTIONS (5)
  - Arthralgia [Unknown]
  - Pain [Unknown]
  - Lethargy [Unknown]
  - Pruritus [Unknown]
  - Pollakiuria [Unknown]

NARRATIVE: CASE EVENT DATE: 2018
